FAERS Safety Report 5327709-X (Version None)
Quarter: 2007Q2

REPORT INFORMATION
  Report Type: 
  Country: None (occurrence: None)
  Receive Date: 20070514
  Receipt Date: 20070502
  Transmission Date: 20071010
  Serious: Yes (Hospitalization, Other)
  Sender: FDA-Public Use
  Company Number: 2007US000882

PATIENT
  Age: 30 Year
  Sex: Female
  Weight: 95.2 kg

DRUGS (6)
  1. AMEVIVE [Suspect]
     Indication: PSORIASIS
     Dosage: INTRAMUSCULAR
     Route: 030
     Dates: start: 20030916
  2. ALDOMET [Concomitant]
  3. IRON (IRON) [Concomitant]
  4. CALCIUM (ASCORBIC ACID) [Concomitant]
  5. FOLIC ACID [Concomitant]
  6. PRENATAL VITAMINS (ASCORBIC ACID, TOCOPHEROL, NICOTINIC ACID, MINERALS [Concomitant]

REACTIONS (5)
  - BLOOD PRESSURE INCREASED [None]
  - CAESAREAN SECTION [None]
  - DRUG EXPOSURE DURING PREGNANCY [None]
  - PREGNANCY [None]
  - PREMATURE BABY [None]
